FAERS Safety Report 4478666-X (Version None)
Quarter: 2004Q4

REPORT INFORMATION
  Report Type: 
  Country: None (occurrence: None)
  Receive Date: 20040923
  Receipt Date: 20040706
  Transmission Date: 20050328
  Serious: No
  Sender: FDA-Public Use
  Company Number: USA040669135

PATIENT
  Age: 72 Year
  Sex: Female
  Weight: 66 kg

DRUGS (15)
  1. FORTEO [Suspect]
     Indication: OSTEOPOROSIS
     Dosage: 20 UG DAY
     Dates: start: 20040528
  2. CELEXA [Concomitant]
  3. ACIPHEX [Concomitant]
  4. NORVASC [Concomitant]
  5. ZYRTEC [Concomitant]
  6. THYROID TAB [Concomitant]
  7. SINGULAIR [Concomitant]
  8. LIPITOR [Concomitant]
  9. NYSTATIN [Concomitant]
  10. KLOR-CON [Concomitant]
  11. XANAX [Concomitant]
  12. INTAL [Concomitant]
  13. MAXAIR [Concomitant]
  14. MICARDIS [Concomitant]
  15. LOZOL [Concomitant]

REACTIONS (3)
  - ARTHRALGIA [None]
  - BACK PAIN [None]
  - WEIGHT INCREASED [None]
